FAERS Safety Report 8392289 (Version 6)
Quarter: 2012Q4

REPORT INFORMATION
  Report Type: 
  Country: US (occurrence: US)
  Receive Date: 20120206
  Receipt Date: 20121005
  Transmission Date: 20130627
  Serious: Yes (Hospitalization, Other)
  Sender: FDA-Public Use
  Company Number: PHEH2011US07925

PATIENT
  Age: 80 Year
  Sex: Female

DRUGS (8)
  1. GLEEVEC [Suspect]
     Indication: CHRONIC MYELOID LEUKAEMIA
     Dosage: 300 mg, daily
     Route: 048
     Dates: start: 20111018
  2. GLEEVEC [Suspect]
     Dosage: 400 mg, QD
     Route: 048
     Dates: start: 20111021, end: 20120314
  3. PRILOSEC [Concomitant]
  4. SYNTHROID [Concomitant]
  5. COUMADIN [Concomitant]
  6. JANUVIA [Concomitant]
  7. DIOVAN HCT [Concomitant]
  8. METOPROLOL [Concomitant]

REACTIONS (6)
  - Cardiac disorder [Not Recovered/Not Resolved]
  - Bradycardia [Unknown]
  - Heart rate increased [Not Recovered/Not Resolved]
  - Pleural effusion [Not Recovered/Not Resolved]
  - Nausea [Unknown]
  - Vomiting [Unknown]
